FAERS Safety Report 6431959-9 (Version None)
Quarter: 2009Q4

REPORT INFORMATION
  Report Type: 
  Country: None (occurrence: None)
  Receive Date: 20091109
  Receipt Date: 20091104
  Transmission Date: 20100525
  Serious: Yes (Hospitalization)
  Sender: FDA-Public Use
  Company Number: CH-JNJFOC-20090703965

PATIENT
  Age: 40 Year
  Sex: Female

DRUGS (3)
  1. CAELYX [Suspect]
     Dosage: CYCLE 3
     Route: 042
  2. CAELYX [Suspect]
     Dosage: CYCLE 2
     Route: 042
  3. CAELYX [Suspect]
     Indication: BREAST CANCER
     Dosage: CYCLE 1
     Route: 042

REACTIONS (9)
  - BLISTER [None]
  - LYMPHOPENIA [None]
  - OEDEMA PERIPHERAL [None]
  - OVERDOSE [None]
  - PAIN [None]
  - RASH [None]
  - RASH MACULO-PAPULAR [None]
  - SKIN EXFOLIATION [None]
  - WHITE BLOOD CELL COUNT DECREASED [None]
